FAERS Safety Report 15906835 (Version 2)
Quarter: 2019Q1

REPORT INFORMATION
  Report Type: Spontaneous
  Country: US (occurrence: US)
  Receive Date: 20190204
  Receipt Date: 20190314
  Transmission Date: 20190417
  Serious: No
  Sender: FDA-Public Use
  Company Number: US-ASTRAZENECA-2019SE04609

PATIENT
  Age: 88 Year
  Sex: Female
  Weight: 42.2 kg

DRUGS (4)
  1. SYMBICORT [Suspect]
     Active Substance: BUDESONIDE\FORMOTEROL FUMARATE DIHYDRATE
     Indication: TOBACCO USER
     Dosage: SYMBICORT INHALER, 160/4.5 MCG, 2 PUFFS TWICE A DAY
     Route: 055
     Dates: start: 20181230
  2. LOPRESSOR [Concomitant]
     Active Substance: METOPROLOL TARTRATE
     Indication: BLOOD PRESSURE ABNORMAL
     Route: 048
  3. COMBIVENT [Concomitant]
     Active Substance: ALBUTEROL SULFATE\IPRATROPIUM BROMIDE
     Indication: NASOPHARYNGITIS
     Dosage: 1 PUFF BY MOUTH 4 TIMES A DAY, OR A LITTLE MORE THAN THAT
     Route: 048
  4. CHLORTHALIDONE. [Concomitant]
     Active Substance: CHLORTHALIDONE
     Indication: ILL-DEFINED DISORDER
     Route: 048

REACTIONS (6)
  - Device issue [Unknown]
  - Nasopharyngitis [Unknown]
  - Off label use [Unknown]
  - Intentional device misuse [Unknown]
  - Product use issue [Unknown]
  - Blood pressure abnormal [Unknown]

NARRATIVE: CASE EVENT DATE: 20190107
